FAERS Safety Report 10379750 (Version 2)
Quarter: 2014Q3

REPORT INFORMATION
  Report Type: Spontaneous
  Country: US (occurrence: US)
  Receive Date: 20140812
  Receipt Date: 20140827
  Transmission Date: 20150326
  Serious: Yes (Hospitalization, Other)
  Sender: FDA-Public Use
  Company Number: US-MERCK-1408USA005525

PATIENT
  Sex: Male

DRUGS (1)
  1. JANUVIA [Suspect]
     Active Substance: SITAGLIPTIN PHOSPHATE
     Indication: DIABETES MELLITUS
     Dosage: FOR SIX MONTHS
     Route: 048

REACTIONS (3)
  - Tumour excision [Unknown]
  - Benign pancreatic neoplasm [Unknown]
  - Pancreatectomy [Unknown]
